FAERS Safety Report 7451949-7 (Version None)
Quarter: 2011Q2

REPORT INFORMATION
  Report Type: 
  Country: None (occurrence: None)
  Receive Date: 20110502
  Receipt Date: 20110426
  Transmission Date: 20111010
  Serious: Yes (Hospitalization, Other)
  Sender: FDA-Public Use
  Company Number: US-ROXANE LABORATORIES, INC.-2011-RO-00573RO

PATIENT
  Sex: Male

DRUGS (16)
  1. DEXAMETHASONE [Suspect]
     Indication: MULTIPLE MYELOMA
     Dosage: 40 MG
     Route: 048
     Dates: start: 20100827, end: 20110401
  2. ASPIRIN [Concomitant]
     Indication: THROMBOSIS PROPHYLAXIS
     Dates: start: 20100827
  3. CLONAZEPAM [Concomitant]
     Dates: start: 20100916
  4. LENALIDOMIDE [Suspect]
     Route: 048
     Dates: start: 20110401
  5. CALCIUM [Concomitant]
     Dates: start: 20070831
  6. ATIVAN [Concomitant]
     Dates: start: 20100701
  7. SENOKOT [Concomitant]
     Dates: start: 20100717
  8. GABAPENTIN [Concomitant]
     Dates: start: 20100415
  9. CLONOPIN [Concomitant]
  10. CENTRUM SILVER [Concomitant]
     Dates: start: 20070831
  11. NEURONTIN [Concomitant]
  12. CALCIUM AND VITAMIN D [Concomitant]
  13. DEXAMETHASONE [Suspect]
     Route: 048
     Dates: start: 20110401
  14. BMS833923 [Suspect]
     Indication: MULTIPLE MYELOMA
     Dosage: 90 MG
     Route: 048
     Dates: start: 20100520
  15. LENALIDOMIDE [Suspect]
     Indication: MULTIPLE MYELOMA
     Dosage: 10 MG
     Route: 048
     Dates: start: 20100827, end: 20110401
  16. MAGNESIUM [Concomitant]
     Dates: start: 20100512

REACTIONS (5)
  - EAR PAIN [None]
  - PNEUMOCOCCAL SEPSIS [None]
  - TYMPANIC MEMBRANE HYPERAEMIA [None]
  - NEUTROPENIA [None]
  - SINUSITIS [None]
